FAERS Safety Report 22259065 (Version 2)
Quarter: 2023Q2

REPORT INFORMATION
  Report Type: Spontaneous
  Country: JP (occurrence: JP)
  Receive Date: 20230427
  Receipt Date: 20230519
  Transmission Date: 20230722
  Serious: Yes (Life-Threatening, Hospitalization, Other)
  Sender: FDA-Public Use
  Company Number: JP-MSNLABS-2023MSNLIT00655

PATIENT

DRUGS (6)
  1. ROSUVASTATIN [Suspect]
     Active Substance: ROSUVASTATIN
     Indication: Dyslipidaemia
     Route: 065
  2. ROSUVASTATIN [Suspect]
     Active Substance: ROSUVASTATIN
     Indication: Myocardial ischaemia
     Route: 065
  3. VADADUSTAT [Suspect]
     Active Substance: VADADUSTAT
     Indication: Chronic kidney disease
     Route: 065
  4. VADADUSTAT [Suspect]
     Active Substance: VADADUSTAT
     Indication: Nephrogenic anaemia
  5. AZOSEMIDE [Concomitant]
     Active Substance: AZOSEMIDE
     Route: 065
  6. Epoetin beta pegol [Concomitant]
     Indication: Nephrogenic anaemia
     Dosage: 50 UG/2 W
     Route: 065

REACTIONS (2)
  - Drug interaction [Recovered/Resolved]
  - Rhabdomyolysis [Recovered/Resolved]
